FAERS Safety Report 15358288 (Version 1)
Quarter: 2018Q3

REPORT INFORMATION
  Report Type: Spontaneous
  Country: US (occurrence: US)
  Receive Date: 20180906
  Receipt Date: 20180906
  Transmission Date: 20181010
  Serious: No
  Sender: FDA-Public Use
  Company Number: US-PERRIGO-17US030754

PATIENT
  Sex: Female
  Weight: 61.22 kg

DRUGS (2)
  1. EVAMIST [Suspect]
     Active Substance: ESTRADIOL
     Dosage: UNKNOWN, SINGLE
     Route: 062
     Dates: start: 201711, end: 201711
  2. EVAMIST [Suspect]
     Active Substance: ESTRADIOL
     Indication: MENOPAUSE
     Dosage: 1.53 MG, QD
     Route: 062
     Dates: start: 2009, end: 201711

REACTIONS (2)
  - Underdose [Recovered/Resolved]
  - Product administered at inappropriate site [Recovered/Resolved]

NARRATIVE: CASE EVENT DATE: 2009
